FAERS Safety Report 24720754 (Version 1)
Quarter: 2024Q4

REPORT INFORMATION
  Report Type: Spontaneous
  Country: CA (occurrence: CA)
  Receive Date: 20241211
  Receipt Date: 20241211
  Transmission Date: 20250115
  Serious: Yes (Other)
  Sender: AMGEN
  Company Number: CA-SERVIER-S24015852

PATIENT
  Age: 63 Year
  Sex: Female

DRUGS (1)
  1. IVABRADINE [Suspect]
     Active Substance: IVABRADINE
     Indication: Postural orthostatic tachycardia syndrome
     Dosage: 10 MILLIGRAM, QD (5 MG, BID)
     Route: 065
     Dates: start: 20241120

REACTIONS (1)
  - Mast cell activation syndrome [Not Recovered/Not Resolved]

NARRATIVE: CASE EVENT DATE: 20241120
